FAERS Safety Report 8399215 (Version 2)
Quarter: 2013Q4

REPORT INFORMATION
  Report Type: Spontaneous
  Country: US (occurrence: US)
  Receive Date: 20120210
  Receipt Date: 20131118
  Transmission Date: 20140711
  Serious: Yes (Hospitalization, Other)
  Sender: FDA-Public Use
  Company Number: US-US-EMD SERONO, INC.-7111043

PATIENT
  Sex: Female

DRUGS (4)
  1. REBIF [Suspect]
     Indication: MULTIPLE SCLEROSIS
     Dates: start: 20100519
  2. REBIF [Suspect]
  3. REBIF [Suspect]
  4. IBUPROFEN [Concomitant]
     Indication: ARTHRITIS

REACTIONS (3)
  - Intervertebral disc degeneration [Recovered/Resolved]
  - Spinal column stenosis [Not Recovered/Not Resolved]
  - Sciatica [Recovered/Resolved]
